FAERS Safety Report 5909322-6 (Version None)
Quarter: 2008Q4

REPORT INFORMATION
  Report Type: 
  Country: None (occurrence: None)
  Receive Date: 20081006
  Receipt Date: 20080924
  Transmission Date: 20090506
  Serious: Yes (Other)
  Sender: FDA-Public Use
  Company Number: US-PFIZER INC-2008069180

PATIENT
  Age: 47 Year
  Sex: Female
  Weight: 65.8 kg

DRUGS (2)
  1. LYRICA [Suspect]
     Indication: FIBROMYALGIA
     Route: 048
     Dates: start: 20080117, end: 20080807
  2. LYRICA [Suspect]
     Indication: CYSTITIS

REACTIONS (6)
  - ASTHMA [None]
  - DYSARTHRIA [None]
  - DYSKINESIA [None]
  - DYSTONIA [None]
  - HYPERSENSITIVITY [None]
  - MUSCULAR WEAKNESS [None]
